FAERS Safety Report 14367586 (Version 1)
Quarter: 2018Q1

REPORT INFORMATION
  Report Type: Spontaneous
  Country: US (occurrence: US)
  Receive Date: 20180108
  Receipt Date: 20180108
  Transmission Date: 20180509
  Serious: Yes (Other)
  Sender: FDA-Public Use
  Company Number: None

PATIENT
  Age: 41 Year
  Sex: Female
  Weight: 56.7 kg

DRUGS (5)
  1. SUBOXONE [Suspect]
     Active Substance: BUPRENORPHINE HYDROCHLORIDE\NALOXONE HYDROCHLORIDE
     Indication: INTERVERTEBRAL DISC DEGENERATION
     Dosage: QUANTITY:1 FILM;?
     Route: 060
     Dates: start: 20170815, end: 20180108
  2. ZOLOFT [Concomitant]
     Active Substance: SERTRALINE HYDROCHLORIDE
  3. KLONOPIN [Concomitant]
     Active Substance: CLONAZEPAM
  4. ROBAXIN [Concomitant]
     Active Substance: METHOCARBAMOL
  5. SUBOXONE [Suspect]
     Active Substance: BUPRENORPHINE HYDROCHLORIDE\NALOXONE HYDROCHLORIDE
     Indication: OSTEOARTHRITIS
     Dosage: QUANTITY:1 FILM;?
     Route: 060
     Dates: start: 20170815, end: 20180108

REACTIONS (5)
  - Pain [None]
  - Hypersensitivity [None]
  - Burning sensation [None]
  - Skin exfoliation [None]
  - Swollen tongue [None]

NARRATIVE: CASE EVENT DATE: 20170815
